FAERS Safety Report 7054039-0 (Version None)
Quarter: 2010Q4

REPORT INFORMATION
  Report Type: 
  Country: None (occurrence: None)
  Receive Date: 20101020
  Receipt Date: 20101011
  Transmission Date: 20110411
  Serious: Yes (Other)
  Sender: FDA-Public Use
  Company Number: IT-JNJFOC-20100703132

PATIENT
  Age: 47 Year
  Sex: Male

DRUGS (4)
  1. REMICADE [Suspect]
     Indication: ARTHRITIS ENTEROPATHIC
     Route: 042
  2. SALASOPYRINE [Concomitant]
     Indication: PRODUCT USED FOR UNKNOWN INDICATION
  3. ZESTORETIC [Concomitant]
     Indication: PRODUCT USED FOR UNKNOWN INDICATION
  4. DILATREND [Concomitant]
     Indication: PRODUCT USED FOR UNKNOWN INDICATION

REACTIONS (2)
  - CHOLELITHIASIS [None]
  - HYPERBILIRUBINAEMIA [None]
